FAERS Safety Report 5739538-3 (Version None)
Quarter: 2008Q2

REPORT INFORMATION
  Report Type: 
  Country: None (occurrence: None)
  Receive Date: 20080515
  Receipt Date: 20080509
  Transmission Date: 20081010
  Serious: Yes (Hospitalization)
  Sender: FDA-Public Use
  Company Number: US-BOEHRINGER INGELHEIM GMBH, GERMANY-2008-BP-07335BP

PATIENT
  Age: 82 Year
  Sex: Female

DRUGS (6)
  1. ZANTAC 150 [Suspect]
     Indication: ERUCTATION
     Route: 048
     Dates: start: 20080424, end: 20080508
  2. LIPITOR [Concomitant]
     Indication: BLOOD CHOLESTEROL INCREASED
  3. FUROSEMIDE [Concomitant]
     Indication: HYPERTENSION
  4. VASOTEC [Concomitant]
     Indication: HYPERTENSION
  5. ASPIRIN [Concomitant]
     Indication: CARDIAC DISORDER
  6. NEURONTIN [Concomitant]
     Indication: HEADACHE

REACTIONS (3)
  - DRUG INEFFECTIVE [None]
  - PYREXIA [None]
  - URINARY TRACT INFECTION [None]
